FAERS Safety Report 14869749 (Version 2)
Quarter: 2018Q2

REPORT INFORMATION
  Report Type: Spontaneous
  Country: IT (occurrence: IT)
  Receive Date: 20180509
  Receipt Date: 20180621
  Transmission Date: 20180711
  Serious: Yes (Hospitalization)
  Sender: FDA-Public Use
  Company Number: IT-BAYER-2018-082907

PATIENT
  Age: 38 Year
  Sex: Male
  Weight: 63 kg

DRUGS (4)
  1. ALDACTONE [POTASSIUM CANRENOATE] [Concomitant]
     Active Substance: CANRENOATE POTASSIUM
     Dosage: 200 MG, QD
  2. ACETYLSALICYLIC ACID (} 100 MG) [Suspect]
     Active Substance: ASPIRIN
     Indication: BACK PAIN
     Dosage: 1000 MG, QD
     Route: 048
     Dates: start: 20180401, end: 20180411
  3. LASIX [Concomitant]
     Active Substance: FUROSEMIDE
     Dosage: 50 MG, QD
  4. TENOFOVIR DISOPROXIL FUMARATE. [Concomitant]
     Active Substance: TENOFOVIR DISOPROXIL FUMARATE
     Dosage: 245 MG, QD

REACTIONS (3)
  - Anaemia [Recovered/Resolved]
  - Gastrointestinal ulcer [Recovered/Resolved]
  - Acute kidney injury [Recovered/Resolved]

NARRATIVE: CASE EVENT DATE: 20180411
